FAERS Safety Report 9043246 (Version 1)
Quarter: 2013Q1

REPORT INFORMATION
  Report Type: Report from Study
  Country: US (occurrence: US)
  Receive Date: 20130129
  Receipt Date: 20130129
  Transmission Date: 20140127
  Serious: No
  Sender: FDA-Public Use
  Company Number: US-ABBOTT-12P-163-0906441-00

PATIENT
  Sex: Female
  Weight: 68.1 kg

DRUGS (3)
  1. HUMIRA 40 MG/0.8 ML PEN [Suspect]
     Indication: PSORIASIS
     Route: 050
     Dates: start: 2011, end: 20120121
  2. CLOBETASOL [Concomitant]
     Indication: PSORIASIS
  3. OMEGA 3 [Concomitant]
     Indication: PRODUCT USED FOR UNKNOWN INDICATION

REACTIONS (3)
  - Ear infection [Recovered/Resolved]
  - Sinusitis [Recovered/Resolved]
  - Vulvovaginal mycotic infection [Recovered/Resolved]
